FAERS Safety Report 14246676 (Version 1)
Quarter: 2017Q4

REPORT INFORMATION
  Report Type: Spontaneous
  Country: US (occurrence: US)
  Receive Date: 20171201
  Receipt Date: 20171201
  Transmission Date: 20180321
  Serious: Yes (Other)
  Sender: FDA-Public Use
  Company Number: None

PATIENT
  Age: 88 Year
  Sex: Male
  Weight: 70.2 kg

DRUGS (8)
  1. ISOSORBIDE. [Suspect]
     Active Substance: ISOSORBIDE
     Indication: DRUG THERAPY
     Dosage: ?          QUANTITY:1 TABLET(S);?
     Route: 048
     Dates: start: 20170825, end: 20170825
  2. HYDROCHLOROT [Concomitant]
     Active Substance: HYDROCHLOROTHIAZIDE
  3. FLOMAX [Concomitant]
     Active Substance: TAMSULOSIN HYDROCHLORIDE
  4. LIPITOR [Concomitant]
     Active Substance: ATORVASTATIN CALCIUM
  5. ASPIRIN. [Concomitant]
     Active Substance: ASPIRIN
  6. FINASTERIDE. [Concomitant]
     Active Substance: FINASTERIDE
  7. COQ10 [Concomitant]
     Active Substance: UBIDECARENONE
  8. RANEXA [Suspect]
     Active Substance: RANOLAZINE
     Indication: DRUG THERAPY
     Dosage: ?          QUANTITY:2 CAPSULE(S);?
     Route: 048
     Dates: start: 20170907, end: 20170912

REACTIONS (16)
  - Heart rate increased [None]
  - Dizziness [None]
  - Fatigue [None]
  - Muscular weakness [None]
  - Pneumothorax [None]
  - Motor dysfunction [None]
  - Lung neoplasm malignant [None]
  - Movement disorder [None]
  - Peripheral coldness [None]
  - Visual impairment [None]
  - Blindness [None]
  - Gait inability [None]
  - Feeling abnormal [None]
  - Pulse abnormal [None]
  - Blood pressure decreased [None]
  - Pleural effusion [None]

NARRATIVE: CASE EVENT DATE: 20170925
